FAERS Safety Report 15860666 (Version 1)
Quarter: 2019Q1

REPORT INFORMATION
  Report Type: Report from Study
  Country: None (occurrence: US)
  Receive Date: 20190124
  Receipt Date: 20190124
  Transmission Date: 20190417
  Serious: Yes (Other)
  Sender: FDA-Public Use
  Company Number: US-ABBVIE-19S-163-2633405-00

PATIENT
  Sex: Female
  Weight: 96.25 kg

DRUGS (2)
  1. CREON [Suspect]
     Active Substance: PANCRELIPASE AMYLASE\PANCRELIPASE LIPASE\PANCRELIPASE PROTEASE
     Indication: DIARRHOEA
     Dosage: 8 PER DAY: 2 WITH MEALS, 1 WITH SNACKS, START IN SPRING 2018
     Route: 048
     Dates: start: 2018, end: 201809
  2. CREON [Suspect]
     Active Substance: PANCRELIPASE AMYLASE\PANCRELIPASE LIPASE\PANCRELIPASE PROTEASE
     Dosage: 8 PER DAY: 2 WITH MEALS, 1 WITH SNACKS
     Route: 048
     Dates: start: 201810

REACTIONS (2)
  - Abdominal hernia [Not Recovered/Not Resolved]
  - Off label use [Not Recovered/Not Resolved]

NARRATIVE: CASE EVENT DATE: 2018
